FAERS Safety Report 6898805-0 (Version None)
Quarter: 2010Q3

REPORT INFORMATION
  Report Type: 
  Country: None (occurrence: None)
  Receive Date: 20100802
  Receipt Date: 20071130
  Transmission Date: 20110219
  Serious: No
  Sender: FDA-Public Use
  Company Number: US-PFIZER INC-2007101843

PATIENT
  Sex: Female
  Weight: 63.5 kg

DRUGS (7)
  1. LYRICA [Suspect]
     Indication: PAIN
     Route: 048
     Dates: start: 20070101
  2. LYRICA [Suspect]
     Indication: THORACIC OUTLET SYNDROME
  3. WELLBUTRIN XL [Concomitant]
     Route: 048
  4. DIAZEPAM [Concomitant]
     Indication: PAIN
     Route: 048
  5. OXYCODONE [Concomitant]
     Route: 048
  6. DICLOFENAC [Concomitant]
     Route: 048
  7. SERTRALINE HYDROCHLORIDE [Concomitant]
     Indication: DEPRESSION
     Route: 048

REACTIONS (6)
  - ENERGY INCREASED [None]
  - FEELING ABNORMAL [None]
  - HYPERVIGILANCE [None]
  - INITIAL INSOMNIA [None]
  - MEMORY IMPAIRMENT [None]
  - WEIGHT INCREASED [None]
